FAERS Safety Report 5215657-5 (Version None)
Quarter: 2007Q1

REPORT INFORMATION
  Report Type: 
  Country: None (occurrence: None)
  Receive Date: 20070123
  Receipt Date: 20070117
  Transmission Date: 20070707
  Serious: Yes (Hospitalization)
  Sender: FDA-Public Use
  Company Number: US-ELI_LILLY_AND_COMPANY-US200609003553

PATIENT
  Age: 40 Year
  Sex: Male
  Weight: 83.9 kg

DRUGS (2)
  1. ZYPREXA [Suspect]
     Indication: BIPOLAR DISORDER
     Dosage: 10 MG, UNK
     Dates: start: 19980101, end: 19990101
  2. ZYPREXA [Suspect]
     Dosage: 20 MG, UNK
     Dates: start: 20000101, end: 20050101

REACTIONS (3)
  - DIABETES MELLITUS [None]
  - HAEMATOCHEZIA [None]
  - ULCER HAEMORRHAGE [None]
